FAERS Safety Report 16271172 (Version 1)
Quarter: 2019Q2

REPORT INFORMATION
  Report Type: Spontaneous
  Country: CN (occurrence: CN)
  Receive Date: 20190503
  Receipt Date: 20190503
  Transmission Date: 20190711
  Serious: Yes (Disabling, Other)
  Sender: FDA-Public Use
  Company Number: CN-BAXTER-2019BAX008744

PATIENT
  Age: 63 Year
  Sex: Male
  Weight: 88 kg

DRUGS (17)
  1. CYTARABINE. [Suspect]
     Active Substance: CYTARABINE
     Indication: ACUTE LYMPHOCYTIC LEUKAEMIA
     Route: 065
  2. LACTATED RINGERS SOLUTION [Suspect]
     Active Substance: CALCIUM CHLORIDE\POTASSIUM CHLORIDE\SODIUM CHLORIDE\SODIUM LACTATE
     Indication: FLUID REPLACEMENT
     Dosage: DOSAGE FORM: INJECTION
     Route: 041
     Dates: start: 20190403, end: 20190403
  3. SODIUM CHLORIDE. [Suspect]
     Active Substance: SODIUM CHLORIDE
     Indication: MEDICATION DILUTION
     Dosage: SODIUM CHLORIDE + CYCLOPHOSPHAMIDE, ON DAY 1
     Route: 041
     Dates: start: 20190403, end: 20190403
  4. METHOTREXATE. [Suspect]
     Active Substance: METHOTREXATE
     Route: 065
  5. VINDESINE SULFATE [Suspect]
     Active Substance: VINDESINE SULFATE
     Indication: ACUTE LYMPHOCYTIC LEUKAEMIA
     Route: 065
  6. SODIUM BICARBONATE. [Suspect]
     Active Substance: SODIUM BICARBONATE
     Indication: URINE ALKALINISATION THERAPY
     Route: 041
     Dates: start: 20190403, end: 20190403
  7. VINDESINE SULFATE [Suspect]
     Active Substance: VINDESINE SULFATE
     Route: 065
  8. ENDOXAN [Suspect]
     Active Substance: CYCLOPHOSPHAMIDE
     Indication: ACUTE LYMPHOCYTIC LEUKAEMIA
     Dosage: DOSAGE FORM: INJECTION, SODIUM CHLORIDE + CYCLOPHOSPHAMIDE, ON DAY 1
     Route: 041
     Dates: start: 20190403, end: 20190403
  9. METHOTREXATE. [Suspect]
     Active Substance: METHOTREXATE
     Indication: ACUTE LYMPHOCYTIC LEUKAEMIA
     Dosage: NS 500 ML + METHOTREXATE 3 G, ON DAY 1
     Route: 041
     Dates: start: 20190403, end: 20190403
  10. METHOTREXATE. [Suspect]
     Active Substance: METHOTREXATE
     Indication: ACUTE LYMPHOCYTIC LEUKAEMIA
     Route: 065
  11. SODIUM CHLORIDE. [Suspect]
     Active Substance: SODIUM CHLORIDE
     Dosage: SODIUM CHLORIDE + METHOTREXATE ON DAY 1
     Route: 041
     Dates: start: 20190403, end: 20190403
  12. LEUCOVORIN CALCIUM. [Suspect]
     Active Substance: LEUCOVORIN CALCIUM
     Indication: PRODUCT USED FOR UNKNOWN INDICATION
     Dosage: FIRST ADMINISTRATION
     Route: 030
     Dates: start: 20190403, end: 20190403
  13. LEUCOVORIN CALCIUM. [Suspect]
     Active Substance: LEUCOVORIN CALCIUM
     Dosage: 4 TIMES WERE GIVEN EVERY 6 HOURS
     Route: 030
     Dates: start: 20190403
  14. ENDOXAN [Suspect]
     Active Substance: CYCLOPHOSPHAMIDE
     Dosage: INJECTION
     Route: 065
  15. ENDOXAN [Suspect]
     Active Substance: CYCLOPHOSPHAMIDE
     Dosage: INJECTION
     Route: 065
  16. CYTARABINE. [Suspect]
     Active Substance: CYTARABINE
     Route: 065
  17. CHARCOAL [Suspect]
     Active Substance: ACTIVATED CHARCOAL
     Indication: SUPPORTIVE CARE
     Dosage: TABLETS, DOSE: 0.9 (UNIT NOT REPORTED)
     Route: 048
     Dates: start: 20190404

REACTIONS (3)
  - Bone marrow failure [Unknown]
  - Mouth ulceration [Unknown]
  - Renal impairment [Recovering/Resolving]

NARRATIVE: CASE EVENT DATE: 20190409
